FAERS Safety Report 21136151 (Version 1)
Quarter: 2022Q3

REPORT INFORMATION
  Report Type: Other
  Country: TW (occurrence: None)
  Receive Date: 20220727
  Receipt Date: 20220727
  Transmission Date: 20221027
  Serious: Yes (Other)
  Sender: FDA-Public Use
  Company Number: TW-ROCHE-3144343

PATIENT
  Sex: Female

DRUGS (1)
  1. AVASTIN [Suspect]
     Active Substance: BEVACIZUMAB
     Indication: Ovarian cancer
     Route: 065

REACTIONS (4)
  - Mechanical ileus [Unknown]
  - Intestinal obstruction [Unknown]
  - Hypertension [Recovered/Resolved]
  - Hyperkeratosis [Recovered/Resolved]
